FAERS Safety Report 21785724 (Version 1)
Quarter: 2022Q4

REPORT INFORMATION
  Report Type: Spontaneous
  Country: US (occurrence: US)
  Receive Date: 20221227
  Receipt Date: 20221227
  Transmission Date: 20230113
  Serious: Yes (Hospitalization)
  Sender: FDA-Public Use
  Company Number: US-STRIDES ARCOLAB LIMITED-2021SP030645

PATIENT
  Age: 4 Year
  Sex: Female

DRUGS (4)
  1. ACETAZOLAMIDE [Suspect]
     Active Substance: ACETAZOLAMIDE
     Indication: Intracranial pressure increased
     Dosage: UNK
     Route: 065
  2. MANNITOL [Suspect]
     Active Substance: MANNITOL
     Indication: Intracranial pressure increased
     Dosage: UNK
     Route: 065
  3. SODIUM CHLORIDE [Suspect]
     Active Substance: SODIUM CHLORIDE
     Indication: Intracranial pressure increased
     Dosage: UNK
     Route: 065
  4. PENTOBARBITAL [Suspect]
     Active Substance: PENTOBARBITAL
     Indication: Intracranial pressure increased
     Dosage: UNK
     Route: 065

REACTIONS (1)
  - Drug ineffective for unapproved indication [Unknown]
